FAERS Safety Report 6659844-8 (Version None)
Quarter: 2010Q1

REPORT INFORMATION
  Report Type: 
  Country: None (occurrence: None)
  Receive Date: 20100330
  Receipt Date: 20100330
  Transmission Date: 20100710
  Serious: Yes (Life-Threatening, Hospitalization)
  Sender: FDA-Public Use
  Company Number: None

PATIENT
  Age: 77 Year
  Sex: Male

DRUGS (1)
  1. PIPERACILLIN AND TAZOBACTAM [Suspect]
     Dosage: 3.375 MG QID IV
     Route: 042
     Dates: start: 20100112, end: 20100121

REACTIONS (5)
  - RESPIRATORY DISTRESS [None]
  - TACHYCARDIA [None]
  - TACHYPNOEA [None]
  - URTICARIA [None]
  - WHEEZING [None]
